FAERS Safety Report 20151643 (Version 3)
Quarter: 2022Q1

REPORT INFORMATION
  Report Type: Spontaneous
  Country: US (occurrence: US)
  Receive Date: 20211206
  Receipt Date: 20220107
  Transmission Date: 20220423
  Serious: Yes (Hospitalization, Disabling, Other)
  Sender: FDA-Public Use
  Company Number: US-BAYER-2021A256582

PATIENT
  Age: 71 Year
  Sex: Female

DRUGS (1)
  1. ALEVE [Suspect]
     Active Substance: NAPROXEN SODIUM
     Indication: Arthralgia
     Dosage: UNK UNK, QD
     Dates: start: 2013, end: 2016

REACTIONS (9)
  - Chronic kidney disease [Recovering/Resolving]
  - Cerebrovascular accident [Recovering/Resolving]
  - Peripheral swelling [Unknown]
  - Neuropathy peripheral [None]
  - Monoparesis [None]
  - Motor dysfunction [Recovering/Resolving]
  - Oedema peripheral [Unknown]
  - Incorrect product administration duration [None]
  - Incorrect dose administered [None]

NARRATIVE: CASE EVENT DATE: 20130101
